FAERS Safety Report 6321579-9 (Version None)
Quarter: 2009Q3

REPORT INFORMATION
  Report Type: 
  Country: None (occurrence: None)
  Receive Date: 20090824
  Receipt Date: 20090820
  Transmission Date: 20100115
  Serious: Yes (Other)
  Sender: FDA-Public Use
  Company Number: US-JNJFOC-20090607262

PATIENT
  Age: 18 Year
  Sex: Male
  Weight: 64.4 kg

DRUGS (18)
  1. REMICADE [Suspect]
     Dosage: 8 M/ KG ORDERED, RECEIVED 8 MG/KG
     Route: 042
  2. REMICADE [Suspect]
     Dosage: 8 M/ KG ORDERED, RECEIVED 9.3 MG/KG
     Route: 042
  3. REMICADE [Suspect]
     Dosage: ORDERED 7 MG/KG, RECEIVED 7.6 MG/KG
     Route: 042
  4. REMICADE [Suspect]
     Dosage: ORDERED 7 MG/KG, RECEIVED 6.1 MG/KG
     Route: 042
  5. REMICADE [Suspect]
     Dosage: ORDERED 7 MG/KG, RECEIVED 7.5 MG/KG
     Route: 042
  6. REMICADE [Suspect]
     Dosage: ORDERED 7 MG/KG, RECEIVED 7.6 MG/KG
     Route: 042
  7. REMICADE [Suspect]
     Dosage: ORDERED 7 MG/KG, RECEIVED 7.3 MG/KG
     Route: 042
  8. REMICADE [Suspect]
     Dosage: ORDERED 5 MG/KG
     Route: 042
  9. REMICADE [Suspect]
     Dosage: ORDERED 5 MG/KG, RECEIVED 5.6 MG/KG
     Route: 042
  10. REMICADE [Suspect]
     Dosage: ORDERED 5 MG/KG, RECEIVED 5.8 MG/KG
     Route: 042
  11. REMICADE [Suspect]
     Dosage: ORDERED 5 MG/KG
     Route: 042
  12. REMICADE [Suspect]
     Dosage: ORDERED 5 MG/KG, RECEIVED 5.9 MG/KG
     Route: 042
  13. REMICADE [Suspect]
     Dosage: ORDERED 5 MG/KG
     Route: 042
  14. REMICADE [Suspect]
     Dosage: ORDERED 5 MG/KG, RECEIVED 5.5 MG/KG
     Route: 042
  15. REMICADE [Suspect]
     Dosage: ORDERED 5 MG/KG, RECEIVED 5.4 MG/KG
     Route: 042
  16. REMICADE [Suspect]
     Dosage: ORDERED 5 MG/KG
     Route: 042
  17. REMICADE [Suspect]
     Dosage: ORDERED 5 MG/KG
     Route: 042
  18. REMICADE [Suspect]
     Indication: CROHN'S DISEASE
     Dosage: ORDERED 5 MG/KG, RECEIVED 4.8 MG/KG
     Route: 042

REACTIONS (4)
  - CROHN'S DISEASE [None]
  - DRUG DISPENSING ERROR [None]
  - INCORRECT DOSE ADMINISTERED [None]
  - WEIGHT DECREASED [None]
